FAERS Safety Report 7272875-2 (Version None)
Quarter: 2011Q1

REPORT INFORMATION
  Report Type: 
  Country: None (occurrence: None)
  Receive Date: 20110203
  Receipt Date: 20101207
  Transmission Date: 20110831
  Serious: No
  Sender: FDA-Public Use
  Company Number: US-BAYER-2010-009233

PATIENT
  Sex: Female
  Weight: 59 kg

DRUGS (1)
  1. ALEVE (CAPLET) [Suspect]
     Indication: ANALGESIC THERAPY
     Dosage: DAILY DOSE 2 DF
     Route: 048
     Dates: start: 20101130

REACTIONS (2)
  - NAUSEA [None]
  - ABDOMINAL PAIN UPPER [None]
